FAERS Safety Report 9528989 (Version 1)
Quarter: 2013Q1

REPORT INFORMATION
  Report Type: Spontaneous
  Country: US (occurrence: None)
  Receive Date: 20130329
  Receipt Date: 20130329
  Transmission Date: 20140127
  Serious: No
  Sender: FDA-Public Use
  Company Number: 1000041556

PATIENT
  Age: 74 Year
  Sex: Female

DRUGS (7)
  1. LINZESS [Suspect]
     Indication: IRRITABLE BOWEL SYNDROME
     Route: 048
     Dates: start: 20130108
  2. LINZESS [Suspect]
     Indication: CONSTIPATION
     Route: 048
     Dates: start: 20130108
  3. LEVOTHYROXINE (LEVOTHYROXINE SODIUM) (LEVOTHYROXINE SODIUM) [Concomitant]
  4. PANTOPRAZOLE (PANTOPRAZOLE) (PANTOPRAZOLE) [Concomitant]
  5. SERTRALINE (SERTRALINE) (SERTRALINE) [Concomitant]
  6. ALPRAZOLAM (ALPRAZOLAM) (ALPRAZOLAM) [Concomitant]
  7. ESTRACE (ESTRADIOL) (ESTRADIOL) [Concomitant]

REACTIONS (1)
  - Dyspepsia [None]
